FAERS Safety Report 10333919 (Version 1)
Quarter: 2014Q3

REPORT INFORMATION
  Report Type: Spontaneous
  Country: US (occurrence: US)
  Receive Date: 20140723
  Receipt Date: 20140723
  Transmission Date: 20150326
  Serious: No
  Sender: FDA-Public Use
  Company Number: US-BIOGENIDEC-2014BI068988

PATIENT
  Age: 44 Year
  Sex: Female

DRUGS (3)
  1. TECFIDERA [Suspect]
     Active Substance: DIMETHYL FUMARATE
     Indication: RELAPSING-REMITTING MULTIPLE SCLEROSIS
     Dates: start: 20140625
  2. AUGMENTIN [Concomitant]
     Active Substance: AMOXICILLIN\CLAVULANATE POTASSIUM
     Dates: start: 201406, end: 20140625
  3. TECFIDERA [Suspect]
     Active Substance: DIMETHYL FUMARATE
     Indication: RELAPSING-REMITTING MULTIPLE SCLEROSIS
     Dates: start: 201406

REACTIONS (24)
  - Neck pain [Not Recovered/Not Resolved]
  - Ear tube insertion [Unknown]
  - Feeling hot [Unknown]
  - Peroneal nerve palsy [Not Recovered/Not Resolved]
  - Ear infection [Unknown]
  - Abasia [Recovered/Resolved]
  - Feeling abnormal [Not Recovered/Not Resolved]
  - Intentional underdose [Unknown]
  - Cheilitis [Not Recovered/Not Resolved]
  - Lip injury [Recovered/Resolved]
  - Tooth fracture [Recovered/Resolved]
  - Asthenia [Not Recovered/Not Resolved]
  - Visual impairment [Not Recovered/Not Resolved]
  - Tympanoplasty [Not Recovered/Not Resolved]
  - Speech disorder [Not Recovered/Not Resolved]
  - Ear disorder [Not Recovered/Not Resolved]
  - Pyrexia [Not Recovered/Not Resolved]
  - Balance disorder [Recovered/Resolved]
  - Fall [Recovered/Resolved]
  - Eye pain [Not Recovered/Not Resolved]
  - Mastoiditis [Unknown]
  - Infection [Not Recovered/Not Resolved]
  - Headache [Not Recovered/Not Resolved]
  - White blood cell count decreased [Unknown]

NARRATIVE: CASE EVENT DATE: 2014
